FAERS Safety Report 7425837-6 (Version None)
Quarter: 2011Q2

REPORT INFORMATION
  Report Type: 
  Country: None (occurrence: None)
  Receive Date: 20110418
  Receipt Date: 20110418
  Transmission Date: 20111010
  Serious: Yes (Other)
  Sender: FDA-Public Use
  Company Number: None

PATIENT
  Age: 24 Year
  Sex: Female
  Weight: 81.6 kg

DRUGS (1)
  1. HIBICLENS [Suspect]
     Indication: PREOPERATIVE CARE
     Dosage: SMALL AMOUNT ONCE TOP
     Route: 061
     Dates: start: 20110326, end: 20110326

REACTIONS (3)
  - APPLICATION SITE PAIN [None]
  - DRUG HYPERSENSITIVITY [None]
  - APPLICATION SITE PRURITUS [None]
